FAERS Safety Report 19359584 (Version 2)
Quarter: 2021Q3

REPORT INFORMATION
  Report Type: Spontaneous
  Country: FR (occurrence: FR)
  Receive Date: 20210602
  Receipt Date: 20210812
  Transmission Date: 20211014
  Serious: Yes (Life-Threatening, Hospitalization, Other)
  Sender: FDA-Public Use
  Company Number: FR-ACCORD-226976

PATIENT
  Age: 55 Year
  Sex: Male
  Weight: 93 kg

DRUGS (38)
  1. CASPOFUNGIN [Concomitant]
     Active Substance: CASPOFUNGIN
     Dates: start: 20210518, end: 20210526
  2. ALLOPURINOL. [Concomitant]
     Active Substance: ALLOPURINOL
     Dates: start: 20210510
  3. GEMCITABINE/GEMCITABINE HYDROCHLORIDE [Suspect]
     Active Substance: GEMCITABINE\GEMCITABINE HYDROCHLORIDE
     Indication: DIFFUSE LARGE B-CELL LYMPHOMA
     Dosage: 1Q2W, REGIMEN?01
     Route: 042
     Dates: start: 20210510, end: 20210510
  4. POLARAMINE [Concomitant]
     Active Substance: DEXCHLORPHENIRAMINE MALEATE
     Route: 042
     Dates: start: 20210503
  5. POLARAMINE [Concomitant]
     Active Substance: DEXCHLORPHENIRAMINE MALEATE
     Route: 042
     Dates: start: 20210510, end: 20210510
  6. SOLUPRED [Concomitant]
     Dates: start: 20210510, end: 20210510
  7. TAVANIC [Concomitant]
     Active Substance: LEVOFLOXACIN
     Dates: start: 20210510, end: 20210510
  8. DOLIPRANE [Concomitant]
     Active Substance: ACETAMINOPHEN
     Dates: start: 20210426, end: 20210525
  9. EUPANTOL [Concomitant]
     Active Substance: PANTOPRAZOLE SODIUM
     Dates: start: 20210510
  10. LERCAN [Concomitant]
     Active Substance: LERCANIDIPINE
     Dates: start: 2019
  11. LYRICA [Concomitant]
     Active Substance: PREGABALIN
     Dates: start: 2019
  12. NOVORAPID [Concomitant]
     Active Substance: INSULIN ASPART
     Dates: start: 2019
  13. ABASAGLAR [Concomitant]
     Active Substance: INSULIN GLARGINE
     Dates: start: 2019
  14. SOLUPRED [Concomitant]
     Route: 048
     Dates: end: 20210506
  15. SOLUPRED [Concomitant]
     Route: 048
     Dates: start: 20210510, end: 20210514
  16. OXALIPLATIN. [Suspect]
     Active Substance: OXALIPLATIN
     Indication: DIFFUSE LARGE B-CELL LYMPHOMA
     Dosage: 1Q2W, REGIMEN?01
     Route: 042
     Dates: start: 20210426
  17. BACTRIM [Concomitant]
     Active Substance: SULFAMETHOXAZOLE\TRIMETHOPRIM
     Dates: start: 2019, end: 20210420
  18. DOLIPRANE [Concomitant]
     Active Substance: ACETAMINOPHEN
     Route: 048
     Dates: start: 20210510, end: 20210510
  19. UVEDOSE [Concomitant]
     Active Substance: CHOLECALCIFEROL
     Dates: start: 2019
  20. ZELITREX [Concomitant]
     Active Substance: VALACYCLOVIR HYDROCHLORIDE
     Dates: start: 2019
  21. ERTAPENEM/ERTAPENEM SODIUM [Concomitant]
     Active Substance: ERTAPENEM
     Dates: start: 20210526
  22. EPCORITAMAB. [Suspect]
     Active Substance: EPCORITAMAB
     Indication: DIFFUSE LARGE B-CELL LYMPHOMA
     Dosage: SINGLE DOSE, REGIMEN?04
     Route: 058
     Dates: end: 20210526
  23. POLARAMINE [Concomitant]
     Active Substance: DEXCHLORPHENIRAMINE MALEATE
     Route: 048
     Dates: start: 20210426, end: 20210525
  24. EPCORITAMAB. [Suspect]
     Active Substance: EPCORITAMAB
     Indication: DIFFUSE LARGE B-CELL LYMPHOMA
     Dosage: SINGLE DOSE, REGIMEN?01
     Route: 058
     Dates: start: 20210426, end: 20210426
  25. SOLUPRED [Concomitant]
     Route: 048
     Dates: start: 20210426, end: 20210527
  26. AUGMENTIN [Concomitant]
     Active Substance: AMOXICILLIN\CLAVULANATE POTASSIUM
     Dates: start: 20210510, end: 20210510
  27. TADALAFIL. [Concomitant]
     Active Substance: TADALAFIL
     Dates: start: 20210208
  28. MACROGOL/MACROGOL STEARATE [Concomitant]
     Active Substance: POLYETHYLENE GLYCOLS
     Dates: start: 20210527
  29. EPCORITAMAB. [Suspect]
     Active Substance: EPCORITAMAB
     Indication: DIFFUSE LARGE B-CELL LYMPHOMA
     Dosage: FULL DOSE, REGIMEN?03
     Route: 058
     Dates: start: 20210510, end: 20210510
  30. DOLIPRANE [Concomitant]
     Active Substance: ACETAMINOPHEN
     Dates: start: 20210512
  31. SOLUPRED [Concomitant]
     Route: 048
     Dates: start: 20210525, end: 20210527
  32. GEMCITABINE/GEMCITABINE HYDROCHLORIDE [Suspect]
     Active Substance: GEMCITABINE\GEMCITABINE HYDROCHLORIDE
     Indication: DIFFUSE LARGE B-CELL LYMPHOMA
     Dosage: 1Q2W, REGIMEN?01
     Route: 042
     Dates: start: 20210426
  33. INSULIN [Concomitant]
     Active Substance: INSULIN NOS
     Dates: start: 20210517, end: 20210518
  34. HYDROCHLOROTHIAZIDE/IRBESARTAN [Concomitant]
     Active Substance: HYDROCHLOROTHIAZIDE\IRBESARTAN
     Dates: start: 2019
  35. PLATELETS/PLATELETS/CONCENTRATED [Concomitant]
     Dates: start: 20210516, end: 20210516
  36. TOVIAZ [Concomitant]
     Active Substance: FESOTERODINE FUMARATE
     Dates: start: 20210208
  37. EPCORITAMAB. [Suspect]
     Active Substance: EPCORITAMAB
     Indication: DIFFUSE LARGE B-CELL LYMPHOMA
     Dosage: SINGLE DOSE, REGIMEN?02
     Route: 058
     Dates: start: 20210503, end: 20210503
  38. OXALIPLATIN. [Suspect]
     Active Substance: OXALIPLATIN
     Indication: DIFFUSE LARGE B-CELL LYMPHOMA
     Dosage: SINGLE; REGIMEN?02
     Route: 042
     Dates: start: 20210510, end: 20210510

REACTIONS (3)
  - Sepsis [Recovered/Resolved]
  - Cytokine release syndrome [Not Recovered/Not Resolved]
  - Off label use [Unknown]

NARRATIVE: CASE EVENT DATE: 20210511
